FAERS Safety Report 7750113-1 (Version None)
Quarter: 2011Q3

REPORT INFORMATION
  Report Type: 
  Country: None (occurrence: None)
  Receive Date: 20110914
  Receipt Date: 20110907
  Transmission Date: 20111222
  Serious: Yes (Other)
  Sender: FDA-Public Use
  Company Number: US-AMGEN-USASP2011045906

PATIENT
  Age: 48 Year
  Sex: Female

DRUGS (3)
  1. VITAMIN D [Concomitant]
  2. PROLIA [Suspect]
     Indication: RENAL DISORDER
     Route: 058
     Dates: start: 20110801
  3. CHLOROTHIAZIDE [Concomitant]

REACTIONS (3)
  - MYALGIA [None]
  - EYE SWELLING [None]
  - RASH [None]
